FAERS Safety Report 16677019 (Version 2)
Quarter: 2019Q4

REPORT INFORMATION
  Report Type: Spontaneous
  Country: FR (occurrence: FR)
  Receive Date: 20190807
  Receipt Date: 20191223
  Transmission Date: 20200122
  Serious: Yes (Death, Other)
  Sender: FDA-Public Use
  Company Number: FR-ACCORD-150513

PATIENT
  Age: 7 Year
  Sex: Female

DRUGS (17)
  1. IBUPROFEN. [Suspect]
     Active Substance: IBUPROFEN
     Indication: CEREBRAL PALSY
     Dosage: UNK
     Route: 065
  2. CATAPRESSAN [Suspect]
     Active Substance: CLONIDINE
     Indication: CEREBRAL PALSY
     Dosage: 0.15 MG, QD
     Route: 048
  3. METOCLOPRAMIDE. [Suspect]
     Active Substance: METOCLOPRAMIDE
     Indication: CEREBRAL PALSY
     Dosage: UNK
     Route: 065
  4. CETIRIZINE [Suspect]
     Active Substance: CETIRIZINE HYDROCHLORIDE
     Indication: CEREBRAL PALSY
     Dosage: UNK
     Route: 065
  5. BUDESONIDE. [Suspect]
     Active Substance: BUDESONIDE
     Indication: CEREBRAL PALSY
     Dosage: UNK
     Route: 065
  6. CLORAZEPIC ACID [Suspect]
     Active Substance: CLORAZEPIC ACID
     Indication: CEREBRAL PALSY
     Dosage: UNK
     Route: 065
  7. LEVETIRACETAM. [Suspect]
     Active Substance: LEVETIRACETAM
     Indication: CEREBRAL PALSY
     Dosage: UNK
     Route: 065
  8. VALPROIC ACID. [Suspect]
     Active Substance: VALPROIC ACID
     Indication: CEREBRAL PALSY
     Dosage: UNK
     Route: 065
  9. BOTOX [Suspect]
     Active Substance: ONABOTULINUMTOXINA
     Indication: CEREBRAL PALSY
     Dosage: FORM: POWDER AND SOLVENT FOR PROLONGED RELEASE SUSPENSION FOR INJECT
     Route: 030
  10. TRANXENE [Suspect]
     Active Substance: CLORAZEPATE DIPOTASSIUM
     Indication: CEREBRAL PALSY
     Dosage: UNK
     Route: 065
  11. GENTAMICIN B.BRAUN [Suspect]
     Active Substance: GENTAMICIN SULFATE
     Indication: CEREBRAL PALSY
     Dosage: UNK
     Route: 065
  12. LEVOSALBUTAMOL [Suspect]
     Active Substance: LEVALBUTEROL
     Indication: CEREBRAL PALSY
     Dosage: UNK
     Route: 065
  13. LACTULOSE. [Suspect]
     Active Substance: LACTULOSE
     Indication: CEREBRAL PALSY
     Dosage: UNK
     Route: 065
  14. IPRATROPIUM [Suspect]
     Active Substance: IPRATROPIUM
     Indication: CEREBRAL PALSY
     Dosage: UNK
     Route: 065
  15. BACLOFEN. [Suspect]
     Active Substance: BACLOFEN
     Indication: CEREBRAL PALSY
     Dosage: UNK
     Route: 065
  16. GABAPENTIN. [Suspect]
     Active Substance: GABAPENTIN
     Indication: CEREBRAL PALSY
     Dosage: UNK
     Route: 065
  17. RANITIDINE. [Suspect]
     Active Substance: RANITIDINE
     Indication: CEREBRAL PALSY
     Dosage: UNK
     Route: 065

REACTIONS (5)
  - Muscular weakness [Fatal]
  - Pneumonia [Fatal]
  - Death [Fatal]
  - Off label use [Unknown]
  - Seizure [Fatal]
